FAERS Safety Report 5757696-1 (Version None)
Quarter: 2008Q2

REPORT INFORMATION
  Report Type: 
  Country: None (occurrence: None)
  Receive Date: 20080603
  Receipt Date: 20080522
  Transmission Date: 20081010
  Serious: Yes (Death)
  Sender: FDA-Public Use
  Company Number: US-PFIZER INC-2008046062

PATIENT
  Age: 50 Year

DRUGS (1)
  1. CHANTIX [Suspect]

REACTIONS (1)
  - DEATH [None]
